FAERS Safety Report 7296156-6 (Version None)
Quarter: 2011Q1

REPORT INFORMATION
  Report Type: 
  Country: None (occurrence: None)
  Receive Date: 20110216
  Receipt Date: 20110208
  Transmission Date: 20110831
  Serious: Yes (Other)
  Sender: FDA-Public Use
  Company Number: JP-JNJFOC-20110203488

PATIENT
  Age: 54 Year
  Sex: Male

DRUGS (2)
  1. ITRIZOLE [Suspect]
     Route: 048
  2. ITRIZOLE [Suspect]
     Indication: ASPERGILLOSIS
     Route: 048

REACTIONS (1)
  - HAEMOLYTIC ANAEMIA [None]
